FAERS Safety Report 17760673 (Version 2)
Quarter: 2020Q2

REPORT INFORMATION
  Report Type: Spontaneous
  Country: US (occurrence: US)
  Receive Date: 20200508
  Receipt Date: 20200528
  Transmission Date: 20200714
  Serious: No
  Sender: FDA-Public Use
  Company Number: US-GLAXOSMITHKLINE-US2020AMR075488

PATIENT
  Sex: Female

DRUGS (2)
  1. ZEJULA [Suspect]
     Active Substance: NIRAPARIB
     Indication: OVARIAN CANCER
     Dosage: 300 MG, DAILY
     Dates: start: 20200423
  2. ZEJULA [Suspect]
     Active Substance: NIRAPARIB
     Dosage: 300 MG, QD
     Dates: start: 20200425

REACTIONS (8)
  - Nausea [Unknown]
  - Platelet count decreased [Unknown]
  - Migraine [Unknown]
  - Erythema [Unknown]
  - Myalgia [Recovered/Resolved]
  - Heart rate increased [Unknown]
  - Constipation [Not Recovered/Not Resolved]
  - Musculoskeletal stiffness [Unknown]
